FAERS Safety Report 7334600-6 (Version None)
Quarter: 2011Q1

REPORT INFORMATION
  Report Type: 
  Country: None (occurrence: None)
  Receive Date: 20110307
  Receipt Date: 20110107
  Transmission Date: 20110831
  Serious: No
  Sender: FDA-Public Use
  Company Number: A0904828A

PATIENT
  Sex: Female

DRUGS (1)
  1. REQUIP [Suspect]
     Dosage: 4MG UNKNOWN
     Dates: start: 20100420

REACTIONS (2)
  - MALAISE [None]
  - DRUG ADMINISTRATION ERROR [None]
